FAERS Safety Report 5315446-7 (Version None)
Quarter: 2007Q1

REPORT INFORMATION
  Report Type: 
  Country: None (occurrence: None)
  Receive Date: 20070201
  Receipt Date: 20061221
  Transmission Date: 20070707
  Serious: Yes (Other)
  Sender: FDA-Public Use
  Company Number: US-2006-030650

PATIENT
  Age: 42 Year
  Sex: Female
  Weight: 64 kg

DRUGS (1)
  1. MIRENA [Suspect]
     Indication: CONTRACEPTION
     Dosage: 20 UG/DAY, CONT, INTRA-UTERINE
     Route: 015
     Dates: start: 20060501, end: 20061220

REACTIONS (6)
  - DYSMENORRHOEA [None]
  - MENORRHAGIA [None]
  - MIGRAINE [None]
  - OVARIAN CYST [None]
  - PROCEDURAL PAIN [None]
  - WEIGHT INCREASED [None]
